FAERS Safety Report 14317978 (Version 2)
Quarter: 2018Q1

REPORT INFORMATION
  Report Type: Spontaneous
  Country: SK (occurrence: SK)
  Receive Date: 20171222
  Receipt Date: 20180212
  Transmission Date: 20180509
  Serious: Yes (Hospitalization)
  Sender: FDA-Public Use
  Company Number: PHHY2017SK191606

PATIENT
  Age: 39 Year
  Sex: Female

DRUGS (4)
  1. OMEPRAZOLE. [Suspect]
     Active Substance: OMEPRAZOLE
     Indication: PEMPHIGOID
     Dosage: 20 MG, QD
     Route: 065
  2. PREDNICARBATE. [Concomitant]
     Active Substance: PREDNICARBATE
     Indication: PEMPHIGOID
     Route: 061
  3. METHYLPREDNISOLONE. [Concomitant]
     Active Substance: METHYLPREDNISOLONE
     Indication: PEMPHIGOID
     Dosage: FROM 20 MG TO 16 MG
     Route: 065
  4. CETIRIZINE [Concomitant]
     Active Substance: CETIRIZINE HYDROCHLORIDE
     Indication: PEMPHIGOID
     Route: 065

REACTIONS (4)
  - Normal newborn [Unknown]
  - Maternal exposure during pregnancy [Unknown]
  - Drug ineffective [Unknown]
  - Premature rupture of membranes [Unknown]
